FAERS Safety Report 6071089-1 (Version None)
Quarter: 2009Q1

REPORT INFORMATION
  Report Type: 
  Country: None (occurrence: None)
  Receive Date: 20090209
  Receipt Date: 20081024
  Transmission Date: 20090719
  Serious: No
  Sender: FDA-Public Use
  Company Number: A0753943A

PATIENT
  Sex: Male
  Weight: 122.7 kg

DRUGS (1)
  1. PAXIL CR [Suspect]
     Route: 048

REACTIONS (2)
  - GENERALISED ANXIETY DISORDER [None]
  - WEIGHT INCREASED [None]
